FAERS Safety Report 11698572 (Version 2)
Quarter: 2015Q4

REPORT INFORMATION
  Report Type: Spontaneous
  Country: PR (occurrence: PR)
  Receive Date: 20151104
  Receipt Date: 20151210
  Transmission Date: 20160304
  Serious: Yes (Other)
  Sender: FDA-Public Use
  Company Number: PR-BAXALTA-2015BLT002502

PATIENT
  Age: 6 Year
  Sex: Female

DRUGS (1)
  1. GAMMAGARD LIQUID [Suspect]
     Active Substance: HUMAN IMMUNOGLOBULIN G
     Indication: PRODUCT USED FOR UNKNOWN INDICATION
     Dosage: 10 G, UNK
     Route: 042
     Dates: start: 20151011

REACTIONS (4)
  - Pyrexia [Unknown]
  - Hypertension [Unknown]
  - Respiratory distress [Unknown]
  - Chills [Unknown]

NARRATIVE: CASE EVENT DATE: 20151011
